FAERS Safety Report 9105666 (Version 2)
Quarter: 2013Q2

REPORT INFORMATION
  Report Type: Spontaneous
  Country: CA (occurrence: CA)
  Receive Date: 20130220
  Receipt Date: 20130422
  Transmission Date: 20140414
  Serious: Yes (Other)
  Sender: FDA-Public Use
  Company Number: CA-BAYER-2013-021623

PATIENT
  Age: 30 Year
  Sex: Female
  Weight: 59.86 kg

DRUGS (1)
  1. GADOVIST [Suspect]
     Indication: NUCLEAR MAGNETIC RESONANCE IMAGING
     Dosage: 10 ML, ONCE
     Route: 042
     Dates: start: 20120827, end: 20120827

REACTIONS (7)
  - Abdominal distension [Unknown]
  - Dyspnoea [Unknown]
  - Hypoaesthesia [Unknown]
  - Nausea [Unknown]
  - Pharyngeal oedema [Unknown]
  - Pruritus [Unknown]
  - Urticaria [Unknown]
